FAERS Safety Report 9254068 (Version 1)
Quarter: 2013Q2

REPORT INFORMATION
  Report Type: Spontaneous
  Country: US (occurrence: None)
  Receive Date: 20130419
  Receipt Date: 20130419
  Transmission Date: 20140414
  Serious: Yes (Death, Hospitalization)
  Sender: FDA-Public Use
  Company Number: FK201301159

PATIENT
  Age: 78 Year
  Sex: Male
  Weight: 92 kg

DRUGS (21)
  1. VANCOMYCIN [Suspect]
     Indication: RESPIRATORY FAILURE
     Route: 042
     Dates: start: 201301
  2. VANCOMYCIN [Suspect]
     Indication: SEPTIC SHOCK
     Route: 042
     Dates: start: 201301
  3. XTANDI [Suspect]
     Indication: PROSTATE CANCER
     Route: 048
     Dates: start: 201210, end: 20130101
  4. ACYCLOVIR [Concomitant]
  5. NITROGLYCERIN (GLYCERYL TRINITRATE) [Concomitant]
  6. ASPIRIN [Concomitant]
  7. AZITHROMYCIN (AZITORMYCIN) [Concomitant]
  8. ZOSYN (PIP/TAZO) [Concomitant]
  9. TAMIFLU [Concomitant]
  10. PARACETAMOL (PARACETAMOL) [Concomitant]
  11. AMIODARONE (AMIODARONE) [Concomitant]
  12. FUROSEMIDE (FUROSEMIDE) [Concomitant]
  13. DABIGATRAN (DABIGATRAN) [Concomitant]
  14. DIGOXIN (DIGOXIN) [Concomitant]
  15. CARVEDILOL (CARVEDILOL) [Concomitant]
  16. LIPITOR (ATORVASTATI NCALCIUM) [Concomitant]
  17. OMEGA-3 FISH OIL [Concomitant]
  18. LEVOPHED (NOREPINEPHRINE BITARTRATE) [Concomitant]
  19. BACTRIM [Concomitant]
  20. FENTANYL (FENTANYL) [Concomitant]
  21. UNSPECIFIED STEROIDS [Concomitant]

REACTIONS (6)
  - Respiratory failure [None]
  - Cardiac failure [None]
  - Septic shock [None]
  - Renal failure [None]
  - Ileus [None]
  - Labile blood pressure [None]
